FAERS Safety Report 24193684 (Version 1)
Quarter: 2024Q3

REPORT INFORMATION
  Report Type: Spontaneous
  Country: CN (occurrence: CN)
  Receive Date: 20240809
  Receipt Date: 20240809
  Transmission Date: 20241017
  Serious: Yes (Hospitalization)
  Sender: PANACEA BIOTEC
  Company Number: CN-PBT-009605

PATIENT
  Age: 17 Year
  Sex: Male

DRUGS (2)
  1. TACROLIMUS [Suspect]
     Active Substance: TACROLIMUS
     Indication: Eczema
     Route: 065
  2. CORTICOSTEROID NOS [Suspect]
     Active Substance: CORTICOSTEROID NOS
     Indication: Eczema
     Route: 065

REACTIONS (3)
  - Skin papilloma [Recovered/Resolved]
  - Social problem [Unknown]
  - Product use in unapproved indication [Unknown]
